FAERS Safety Report 7171618-0 (Version None)
Quarter: 2010Q4

REPORT INFORMATION
  Report Type: 
  Country: None (occurrence: None)
  Receive Date: 20101217
  Receipt Date: 20100129
  Transmission Date: 20110411
  Serious: Yes (Hospitalization, Other)
  Sender: FDA-Public Use
  Company Number: US-AMGEN-QUU389752

PATIENT

DRUGS (1)
  1. ENBREL [Suspect]
     Indication: PSORIASIS
     Dosage: 50 MG, QWK
     Route: 058

REACTIONS (4)
  - CELLULITIS [None]
  - DIZZINESS [None]
  - DYSPNOEA [None]
  - STAPHYLOCOCCAL INFECTION [None]
